FAERS Safety Report 9183825 (Version 1)
Quarter: 2013Q1

REPORT INFORMATION
  Report Type: Spontaneous
  Country: FR (occurrence: FR)
  Receive Date: 20130322
  Receipt Date: 20130322
  Transmission Date: 20140127
  Serious: Yes (Hospitalization)
  Sender: FDA-Public Use
  Company Number: FR-ROCHE-1204384

PATIENT
  Age: 55 Year
  Sex: Male

DRUGS (6)
  1. ROACTEMRA [Suspect]
     Indication: RHEUMATOID ARTHRITIS
     Dosage: LAST DOSE PRIOR TO SAE 13/FEB/2013
     Route: 042
     Dates: start: 201104
  2. APRANAX [Suspect]
     Indication: PAIN
     Route: 048
     Dates: start: 20130306, end: 20130306
  3. METOJECT [Suspect]
     Indication: RHEUMATOID ARTHRITIS
     Route: 058
  4. CORTANCYL [Suspect]
     Indication: RHEUMATOID ARTHRITIS
     Route: 048
  5. SPECIAFOLDINE [Concomitant]
  6. IXPRIM [Concomitant]

REACTIONS (1)
  - Erysipelas [Recovered/Resolved]
